FAERS Safety Report 4367171-7 (Version None)
Quarter: 2004Q2

REPORT INFORMATION
  Report Type: 
  Country: None (occurrence: None)
  Receive Date: 20040524
  Receipt Date: 20040517
  Transmission Date: 20050107
  Serious: Yes (Disabling)
  Sender: FDA-Public Use
  Company Number: HQWYE083507MAY03

PATIENT
  Age: 67 Year
  Sex: Male

DRUGS (3)
  1. DIMETAPP [Suspect]
     Indication: NASOPHARYNGITIS
     Dosage: ORAL
     Route: 048
  2. DIMETAPP [Suspect]
     Indication: SINUS CONGESTION
     Dosage: ORAL
     Route: 048
  3. ROBITUSSIN CF [Suspect]

REACTIONS (4)
  - AMNESIA [None]
  - CEREBROVASCULAR ACCIDENT [None]
  - HEMIPLEGIA [None]
  - HYPOAESTHESIA [None]
